FAERS Safety Report 19406665 (Version 3)
Quarter: 2021Q3

REPORT INFORMATION
  Report Type: Spontaneous
  Country: US (occurrence: US)
  Receive Date: 20210611
  Receipt Date: 20210928
  Transmission Date: 20211014
  Serious: Yes (Death, Hospitalization, Other)
  Sender: FDA-Public Use
  Company Number: NVSC2021US129678

PATIENT
  Sex: Male

DRUGS (1)
  1. ENTRESTO [Suspect]
     Active Substance: SACUBITRIL\VALSARTAN
     Indication: PRODUCT USED FOR UNKNOWN INDICATION
     Dosage: UNK
     Route: 065

REACTIONS (9)
  - Angiopathy [Unknown]
  - Ventricular tachycardia [Unknown]
  - Sepsis [Unknown]
  - Hypotension [Unknown]
  - Blood pressure abnormal [Unknown]
  - Ventricular fibrillation [Unknown]
  - Illness [Unknown]
  - Cardiac failure [Unknown]
  - Death [Fatal]
